FAERS Safety Report 12491718 (Version 1)
Quarter: 2016Q2

REPORT INFORMATION
  Report Type: Spontaneous
  Country: US (occurrence: None)
  Receive Date: 20160622
  Receipt Date: 20160622
  Transmission Date: 20160815
  Serious: Yes (Other)
  Sender: FDA-Public Use
  Company Number: None

PATIENT
  Age: 55 Year
  Sex: Female
  Weight: 64.41 kg

DRUGS (11)
  1. VITAMIN D [Concomitant]
     Active Substance: CHOLECALCIFEROL
  2. MELOXICAM. [Concomitant]
     Active Substance: MELOXICAM
  3. CALCIUM [Concomitant]
     Active Substance: CALCIUM
  4. MELATONIN [Concomitant]
     Active Substance: MELATONIN
  5. VENAFLAXINE [Concomitant]
  6. ZOLPIDEM 10 MG TEVA, 10 MG [Suspect]
     Active Substance: ZOLPIDEM\ZOLPIDEM TARTRATE
     Indication: INSOMNIA
     Dosage: 45 TABLET (S) 1/2 NIGHT, + 1/2 TAKEN BY MOUTH
     Route: 048
     Dates: start: 20160603, end: 20160621
  7. ARMOUR [Concomitant]
  8. PROGESTERONE. [Concomitant]
     Active Substance: PROGESTERONE
  9. NORTRIPTYLIN [Concomitant]
     Active Substance: NORTRIPTYLINE
  10. MULTIVITAMIN WITH 18 MG IRON [Concomitant]
  11. FISH OIL [Concomitant]
     Active Substance: FISH OIL

REACTIONS (7)
  - Fatigue [None]
  - Drug effect decreased [None]
  - Product substitution issue [None]
  - Pain [None]
  - Product quality issue [None]
  - Insomnia [None]
  - Arthritis [None]

NARRATIVE: CASE EVENT DATE: 20160603
